FAERS Safety Report 9800913 (Version 1)
Quarter: 2014Q1

REPORT INFORMATION
  Report Type: Spontaneous
  Country: US (occurrence: US)
  Receive Date: 20140107
  Receipt Date: 20140107
  Transmission Date: 20141002
  Serious: Yes (Hospitalization)
  Sender: FDA-Public Use
  Company Number: US-JNJFOC-20131217784

PATIENT
  Sex: Female

DRUGS (6)
  1. DURAGESIC [Suspect]
     Indication: FIBROMYALGIA
     Route: 062
     Dates: start: 201309
  2. DURAGESIC [Suspect]
     Indication: INFLAMMATORY BOWEL DISEASE
     Route: 062
     Dates: start: 201309
  3. DURAGESIC [Suspect]
     Indication: PAIN
     Route: 062
     Dates: start: 201309
  4. FENTANYL TRANSDERMAL SYSTEM [Suspect]
     Indication: FIBROMYALGIA
     Route: 062
     Dates: start: 2013, end: 2013
  5. FENTANYL TRANSDERMAL SYSTEM [Suspect]
     Indication: INFLAMMATORY BOWEL DISEASE
     Route: 062
     Dates: start: 2013, end: 2013
  6. FENTANYL TRANSDERMAL SYSTEM [Suspect]
     Indication: PAIN
     Route: 062
     Dates: start: 2013, end: 2013

REACTIONS (7)
  - Inflammatory bowel disease [Not Recovered/Not Resolved]
  - Fibromyalgia [Not Recovered/Not Resolved]
  - Product adhesion issue [Unknown]
  - Wrong technique in drug usage process [Unknown]
  - Product quality issue [Unknown]
  - Drug dose omission [Unknown]
  - Drug ineffective [Unknown]
